FAERS Safety Report 5747724-1 (Version None)
Quarter: 2008Q2

REPORT INFORMATION
  Report Type: 
  Country: None (occurrence: None)
  Receive Date: 20080523
  Receipt Date: 20080520
  Transmission Date: 20081010
  Serious: Yes (Death)
  Sender: FDA-Public Use
  Company Number: IN-BRISTOL-MYERS SQUIBB COMPANY-14197842

PATIENT
  Age: 37 Year
  Sex: Female

DRUGS (1)
  1. SPRYCEL [Suspect]
     Route: 048
     Dates: start: 20080215, end: 20080315

REACTIONS (1)
  - GENERAL PHYSICAL HEALTH DETERIORATION [None]
